FAERS Safety Report 9145379 (Version 2)
Quarter: 2013Q2

REPORT INFORMATION
  Report Type: Spontaneous
  Country: DE (occurrence: DE)
  Receive Date: 20130307
  Receipt Date: 20130423
  Transmission Date: 20140414
  Serious: Yes (Life-Threatening, Hospitalization)
  Sender: FDA-Public Use
  Company Number: DE-JNJFOC-20130302698

PATIENT
  Age: 52 Year
  Sex: Female
  Weight: 78 kg

DRUGS (4)
  1. IBUPROFEN [Suspect]
     Indication: PRODUCT USED FOR UNKNOWN INDICATION
     Route: 065
     Dates: start: 20130222
  2. TAVOR [Suspect]
     Indication: PERSONALITY DISORDER
     Route: 065
     Dates: start: 20130222
  3. TAVOR [Suspect]
     Indication: PERSONALITY DISORDER
     Route: 065
  4. ANTIBIOTICS NOS [Suspect]
     Indication: PRODUCT USED FOR UNKNOWN INDICATION
     Route: 065
     Dates: start: 20130222

REACTIONS (3)
  - Toxicity to various agents [Recovered/Resolved]
  - Self injurious behaviour [Recovered/Resolved]
  - Somnolence [Recovered/Resolved]
